FAERS Safety Report 9502778 (Version 2)
Quarter: 2013Q4

REPORT INFORMATION
  Report Type: Spontaneous
  Country: US (occurrence: US)
  Receive Date: 20130906
  Receipt Date: 20131018
  Transmission Date: 20140711
  Serious: Yes (Hospitalization, Other)
  Sender: FDA-Public Use
  Company Number: US-JNJFOC-20130816730

PATIENT
  Sex: Male
  Weight: 113.4 kg

DRUGS (17)
  1. REMICADE [Suspect]
     Indication: CROHN^S DISEASE
     Dosage: 1200 UNITS
     Route: 042
     Dates: end: 201308
  2. REMICADE [Suspect]
     Indication: CROHN^S DISEASE
     Route: 042
     Dates: start: 2009
  3. PREDNISONE [Concomitant]
     Indication: CROHN^S DISEASE
     Route: 048
     Dates: start: 201308
  4. AMLODIPINE [Concomitant]
     Route: 048
  5. ATENOLOL [Concomitant]
     Route: 048
  6. BENAZEPRIL [Concomitant]
     Route: 048
  7. ESCITALOPRAM [Concomitant]
     Route: 048
  8. FOLIC ACID [Concomitant]
     Route: 048
  9. GLIMEPIRIDE [Concomitant]
     Route: 048
  10. HYDROCHLOROTHIAZIDE [Concomitant]
     Route: 048
  11. INSULIN GLARGINE [Concomitant]
     Route: 058
  12. HUMALOG [Concomitant]
     Route: 065
  13. METFORMIN [Concomitant]
     Route: 048
  14. METHOTRIMEPRAZINE [Concomitant]
     Route: 048
  15. PRILOSEC [Concomitant]
     Route: 048
  16. SIMVASTATIN [Concomitant]
     Route: 048
  17. VIREAD [Concomitant]
     Route: 048

REACTIONS (4)
  - Crohn^s disease [Not Recovered/Not Resolved]
  - Fistula [Not Recovered/Not Resolved]
  - Human polyomavirus infection [Not Recovered/Not Resolved]
  - Drug ineffective [Recovered/Resolved]
